FAERS Safety Report 18544347 (Version 1)
Quarter: 2020Q4

REPORT INFORMATION
  Report Type: Spontaneous
  Country: GB (occurrence: GB)
  Receive Date: 20201125
  Receipt Date: 20201125
  Transmission Date: 20210114
  Serious: Yes (Hospitalization)
  Sender: FDA-Public Use
  Company Number: GB-TEVA-2020-GB-1850837

PATIENT
  Age: 75 Year
  Sex: Male

DRUGS (8)
  1. BUMETANIDE. [Concomitant]
     Active Substance: BUMETANIDE
     Route: 048
  2. CITALOPRAM [Concomitant]
     Active Substance: CITALOPRAM HYDROBROMIDE
     Route: 048
  3. CALCIUM AND COLECALCIFEROL [Concomitant]
     Dosage: 400UNIT/1.5G
     Route: 048
  4. SIMVASTATIN. [Concomitant]
     Active Substance: SIMVASTATIN
     Dosage: 40 MILLIGRAM DAILY; AT NIGHT
     Route: 048
  5. QUININE SULFATE. [Concomitant]
     Active Substance: QUININE SULFATE
     Dosage: 200 MILLIGRAM DAILY; AT NIGHT
     Route: 048
  6. SALBUTAMOL [Concomitant]
     Active Substance: ALBUTEROL
     Dosage: 1-2 PUFFS. 100MCG/DOSE
     Route: 055
  7. GABAPENTIN. [Suspect]
     Active Substance: GABAPENTIN
     Indication: BACK PAIN
     Route: 048
     Dates: start: 20201016, end: 20201021
  8. ENALAPRIL [Concomitant]
     Active Substance: ENALAPRIL
     Route: 048

REACTIONS (2)
  - Hallucination, visual [Recovered/Resolved]
  - Confusional state [Recovered/Resolved]

NARRATIVE: CASE EVENT DATE: 20201016
